FAERS Safety Report 21133933 (Version 1)
Quarter: 2022Q3

REPORT INFORMATION
  Report Type: Spontaneous
  Country: US (occurrence: US)
  Receive Date: 20220726
  Receipt Date: 20220726
  Transmission Date: 20221027
  Serious: No
  Sender: FDA-Public Use
  Company Number: US-OYSTER POINT PHARMA, INC.-2022OYS00393

PATIENT
  Sex: Female
  Weight: 53.524 kg

DRUGS (3)
  1. TYRVAYA [Suspect]
     Active Substance: VARENICLINE TARTRATE
     Indication: Dry eye
     Dosage: 1 SPRAY IN EACH NOSTRIL, 2X/DAY
     Route: 045
     Dates: start: 20220323, end: 20220418
  2. XIIDRA [Concomitant]
     Active Substance: LIFITEGRAST
  3. OASIS OTC (OVER THE COUNTER) [Concomitant]

REACTIONS (4)
  - Dry eye [Not Recovered/Not Resolved]
  - Drug ineffective [Recovered/Resolved]
  - Photophobia [Not Recovered/Not Resolved]
  - Sneezing [Unknown]

NARRATIVE: CASE EVENT DATE: 20220101
